FAERS Safety Report 19699359 (Version 1)
Quarter: 2021Q3

REPORT INFORMATION
  Report Type: Spontaneous
  Country: US (occurrence: US)
  Receive Date: 20210813
  Receipt Date: 20210813
  Transmission Date: 20211014
  Serious: No
  Sender: FDA-Public Use
  Company Number: US-FRESENIUS MEDICAL CARE RENAL THERAPIES GROUP-FMC-2107-001034

PATIENT
  Age: 37 Year
  Sex: Male

DRUGS (1)
  1. DELFLEX [Suspect]
     Active Substance: CALCIUM CHLORIDE\DEXTROSE\MAGNESIUM CHLORIDE\SODIUM CHLORIDE\SODIUM LACTATE
     Indication: END STAGE RENAL DISEASE
     Dosage: FILLS = 6; FILL VOLUME = 2000 ML; LAST FILL VOLUME = 0ML; TOTAL VOLUME = 12,000 ML; TOTAL SLEEP TIME
     Route: 033

REACTIONS (1)
  - Flank pain [Unknown]
